FAERS Safety Report 17764093 (Version 2)
Quarter: 2020Q2

REPORT INFORMATION
  Report Type: Report from Study
  Country: None (occurrence: US)
  Receive Date: 20200511
  Receipt Date: 20200625
  Transmission Date: 20200714
  Serious: Yes (Other)
  Sender: FDA-Public Use
  Company Number: US-ABBVIE-20K-163-3397147-00

PATIENT
  Sex: Female

DRUGS (2)
  1. VENCLEXTA [Suspect]
     Active Substance: VENETOCLAX
     Indication: ACUTE MYELOID LEUKAEMIA
     Route: 048
     Dates: start: 20200423, end: 2020
  2. VENCLEXTA [Suspect]
     Active Substance: VENETOCLAX
     Route: 048
     Dates: start: 2020

REACTIONS (10)
  - Contusion [Unknown]
  - Acute myeloid leukaemia [Unknown]
  - Feeling cold [Unknown]
  - Vision blurred [Not Recovered/Not Resolved]
  - Diarrhoea [Unknown]
  - White blood cell count decreased [Unknown]
  - Nausea [Unknown]
  - Oedema [Unknown]
  - Packed red blood cell transfusion [Unknown]
  - Memory impairment [Unknown]

NARRATIVE: CASE EVENT DATE: 2020
